FAERS Safety Report 23190409 (Version 2)
Quarter: 2023Q4

REPORT INFORMATION
  Report Type: Report from Study
  Country: ES (occurrence: ES)
  Receive Date: 20231116
  Receipt Date: 20231123
  Transmission Date: 20240110
  Serious: Yes (Other)
  Sender: FDA-Public Use
  Company Number: ES-GRUNENTHAL-2023-112370

PATIENT
  Age: 63 Year
  Sex: Female

DRUGS (2)
  1. QUTENZA [Suspect]
     Active Substance: CAPSAICIN
     Indication: Complex regional pain syndrome
     Dosage: 1 DOSAGE FORM, ONCE
     Route: 003
     Dates: start: 20230522, end: 20230522
  2. QUTENZA [Suspect]
     Active Substance: CAPSAICIN
     Dosage: 1 DOSAGE FORM, ONCE
     Route: 003
     Dates: start: 20231003, end: 20231003

REACTIONS (4)
  - Monoplegia [Recovered/Resolved]
  - Application site hypoaesthesia [Recovering/Resolving]
  - Drug ineffective [Not Recovered/Not Resolved]
  - Drug ineffective [Not Recovered/Not Resolved]

NARRATIVE: CASE EVENT DATE: 20230522
